FAERS Safety Report 5820213-1 (Version None)
Quarter: 2008Q3

REPORT INFORMATION
  Report Type: 
  Country: None (occurrence: None)
  Receive Date: 20080724
  Receipt Date: 20080723
  Transmission Date: 20090109
  Serious: Yes (Hospitalization)
  Sender: FDA-Public Use
  Company Number: PHEH1999US01262

PATIENT
  Sex: Male
  Weight: 99.1 kg

DRUGS (4)
  1. MYCOPHENOLATE MOFETIL [Suspect]
     Dosage: 1 G, BID
     Route: 048
     Dates: start: 19990111, end: 19990322
  2. BACTRIM SS (BACTRIM) [Concomitant]
  3. NEORAL [Suspect]
     Dosage: UNSPECIFIED
     Route: 048
  4. GANCICLOVIR [Suspect]
     Route: 048

REACTIONS (4)
  - BACTERIAL INFECTION [None]
  - LEUKOPENIA [None]
  - NEUTROPENIA [None]
  - URINARY TRACT INFECTION [None]
